FAERS Safety Report 11685553 (Version 1)
Quarter: 2015Q4

REPORT INFORMATION
  Report Type: Spontaneous
  Country: US (occurrence: None)
  Receive Date: 20151029
  Receipt Date: 20151029
  Transmission Date: 20160304
  Serious: Yes (Other)
  Sender: FDA-Public Use
  Company Number: None

PATIENT
  Age: 59 Year
  Sex: Male
  Weight: 71.22 kg

DRUGS (2)
  1. LISINOPRIL -HCTZ [Concomitant]
  2. CHANTIX [Suspect]
     Active Substance: VARENICLINE TARTRATE
     Indication: EX-TOBACCO USER
     Route: 048
     Dates: start: 20150831, end: 20151015

REACTIONS (7)
  - Personality change [None]
  - Agitation [None]
  - Hostility [None]
  - Abnormal dreams [None]
  - Bronchitis chronic [None]
  - Insomnia [None]
  - Emphysema [None]

NARRATIVE: CASE EVENT DATE: 20151015
